FAERS Safety Report 13641621 (Version 1)
Quarter: 2017Q2

REPORT INFORMATION
  Report Type: Spontaneous
  Country: US (occurrence: US)
  Receive Date: 20170611
  Receipt Date: 20170611
  Transmission Date: 20170830
  Serious: Yes (Life-Threatening)
  Sender: FDA-Public Use
  Company Number: None

PATIENT
  Age: 63 Year
  Sex: Female
  Weight: 70.65 kg

DRUGS (16)
  1. KLONEPIN [Concomitant]
  2. ZINC. [Concomitant]
     Active Substance: ZINC
  3. TIKOSYN [Suspect]
     Active Substance: DOFETILIDE
     Indication: PRODUCT USED FOR UNKNOWN INDICATION
     Route: 048
     Dates: start: 20170206, end: 20170208
  4. AMBIEN [Concomitant]
     Active Substance: ZOLPIDEM TARTRATE
  5. S-ADENOSYLMETHIONINE SULFATE P-TOLUENESULFONATE [Concomitant]
     Active Substance: ADEMETIONINE SULFATE TOSILATE
  6. COENZYME Q10 [Concomitant]
     Active Substance: UBIDECARENONE
  7. D-RIBOSE [Concomitant]
     Active Substance: DIETARY SUPPLEMENT
  8. MULTAQ [Concomitant]
     Active Substance: DRONEDARONE
  9. LORSATAN [Concomitant]
  10. VITAMIN D3 [Concomitant]
     Active Substance: CHOLECALCIFEROL
  11. SPIRONOLACTONE. [Concomitant]
     Active Substance: SPIRONOLACTONE
  12. COREG [Concomitant]
     Active Substance: CARVEDILOL
  13. ELIQUIS [Concomitant]
     Active Substance: APIXABAN
  14. CALCIUM [Concomitant]
     Active Substance: CALCIUM
  15. TYLENOL [Concomitant]
     Active Substance: ACETAMINOPHEN
  16. MAGNESIUM [Concomitant]
     Active Substance: MAGNESIUM

REACTIONS (4)
  - Contraindicated product administered [None]
  - Drug interaction [None]
  - Cardiac arrest [None]
  - Drug prescribing error [None]

NARRATIVE: CASE EVENT DATE: 20170208
